FAERS Safety Report 7098802-9 (Version None)
Quarter: 2010Q4

REPORT INFORMATION
  Report Type: 
  Country: None (occurrence: None)
  Receive Date: 20101104
  Receipt Date: 20101025
  Transmission Date: 20110411
  Serious: Yes (Death)
  Sender: FDA-Public Use
  Company Number: 1000015879

PATIENT
  Age: 78 Year
  Sex: Male

DRUGS (2)
  1. CELEXA [Suspect]
     Indication: DEPRESSION
     Dosage: 20 MG (20 MG,1 IN 1 HR),ORAL
     Route: 048
     Dates: start: 20080425, end: 20080430
  2. RYTHMOL SR (PROPAFENOSE HYDROCHLORIDE) (225 MILLIGRAM, CAPSULES) (PROP [Concomitant]

REACTIONS (3)
  - AGGRESSION [None]
  - COMPLETED SUICIDE [None]
  - HOMICIDE [None]
